FAERS Safety Report 7640941-5 (Version None)
Quarter: 2011Q3

REPORT INFORMATION
  Report Type: 
  Country: None (occurrence: None)
  Receive Date: 20110722
  Receipt Date: 20110706
  Transmission Date: 20111222
  Serious: Yes (Hospitalization)
  Sender: FDA-Public Use
  Company Number: 2011MA008450

PATIENT
  Age: 80 Year
  Sex: Female

DRUGS (1)
  1. RISPERIDONE [Suspect]
     Indication: MAJOR DEPRESSION

REACTIONS (1)
  - NEUROLEPTIC MALIGNANT SYNDROME [None]
